FAERS Safety Report 11010693 (Version 7)
Quarter: 2015Q4

REPORT INFORMATION
  Report Type: Spontaneous
  Country: US (occurrence: US)
  Receive Date: 20150410
  Receipt Date: 20151214
  Transmission Date: 20160304
  Serious: Yes (Other)
  Sender: FDA-Public Use
  Company Number: US-ASTELLAS-2015US011400

PATIENT
  Age: 73 Year
  Sex: Male

DRUGS (2)
  1. XTANDI [Suspect]
     Active Substance: ENZALUTAMIDE
     Indication: PROSTATE CANCER
     Dosage: 160 MG (40MG X 4), ONCE DAILY
     Route: 048
     Dates: start: 20141220
  2. XTANDI [Suspect]
     Active Substance: ENZALUTAMIDE
     Indication: METASTATIC CARCINOMA OF THE BLADDER

REACTIONS (13)
  - Dizziness [Unknown]
  - Constipation [Unknown]
  - Memory impairment [Unknown]
  - Amnesia [Unknown]
  - Dyspepsia [Recovering/Resolving]
  - Ageusia [Unknown]
  - Burning sensation [Unknown]
  - Faeces hard [Unknown]
  - Urinary incontinence [Unknown]
  - Ageusia [Unknown]
  - Nasopharyngitis [Unknown]
  - Cerebrovascular accident [Unknown]
  - Abnormal behaviour [Unknown]

NARRATIVE: CASE EVENT DATE: 20150308
